FAERS Safety Report 7822648-4 (Version None)
Quarter: 2011Q4

REPORT INFORMATION
  Report Type: 
  Country: None (occurrence: None)
  Receive Date: 20111018
  Receipt Date: 20111003
  Transmission Date: 20120403
  Serious: Yes (Other)
  Sender: FDA-Public Use
  Company Number: CA-ARROW GEN-2011-16665

PATIENT
  Age: 59 Year
  Sex: Female

DRUGS (1)
  1. TOPIRAMATE [Suspect]
     Indication: CONVULSION
     Dosage: 100 MG, BID
     Dates: start: 20100616

REACTIONS (2)
  - GLYCOSYLATED HAEMOGLOBIN DECREASED [None]
  - WEIGHT DECREASED [None]
